FAERS Safety Report 17991315 (Version 1)
Quarter: 2020Q3

REPORT INFORMATION
  Report Type: Spontaneous
  Country: US (occurrence: US)
  Receive Date: 20200707
  Receipt Date: 20200707
  Transmission Date: 20201103
  Serious: Yes (Death, Hospitalization, Other)
  Sender: FDA-Public Use
  Company Number: US-NAPPMUNDI-USA-2020-0155129

PATIENT
  Sex: Female

DRUGS (1)
  1. OXYCONTIN [Suspect]
     Active Substance: OXYCODONE HYDROCHLORIDE
     Indication: SPINAL PAIN
     Dosage: UNKNOWN
     Route: 048

REACTIONS (5)
  - Abdominal distension [Unknown]
  - Ileus [Unknown]
  - Death [Fatal]
  - Constipation [Unknown]
  - Drug dependence [Unknown]

NARRATIVE: CASE EVENT DATE: 20120422
